FAERS Safety Report 5042466-2 (Version None)
Quarter: 2006Q3

REPORT INFORMATION
  Report Type: 
  Country: None (occurrence: None)
  Receive Date: 20060705
  Receipt Date: 20060531
  Transmission Date: 20061208
  Serious: Yes (Other)
  Sender: FDA-Public Use
  Company Number: PHEH2006US07089

PATIENT
  Sex: Male

DRUGS (3)
  1. VITAMIN D [Suspect]
  2. CALCITRIOL [Suspect]
     Route: 042
  3. AREDIA [Suspect]
     Dosage: 30MG Q3MOS
     Dates: end: 20060531

REACTIONS (2)
  - OSTEONECROSIS [None]
  - PAIN IN EXTREMITY [None]
